FAERS Safety Report 6434688-0 (Version None)
Quarter: 2009Q4

REPORT INFORMATION
  Report Type: 
  Country: None (occurrence: None)
  Receive Date: 20091109
  Receipt Date: 20091109
  Transmission Date: 20100525
  Serious: Yes (Hospitalization)
  Sender: FDA-Public Use
  Company Number: None

PATIENT
  Age: 79 Year
  Sex: Female
  Weight: 88 kg

DRUGS (5)
  1. WARFARIN SODIUM [Suspect]
     Indication: DEEP VEIN THROMBOSIS
     Dosage: UNKNOWN DAILY PO PRIOR TO ADMISSION
     Route: 048
  2. BECLOMETHASONE INHALER [Concomitant]
  3. DARVOCET-N 100 [Concomitant]
  4. LEVOTHYROXINE SODIUM [Concomitant]
  5. TORSEMIDE [Concomitant]

REACTIONS (4)
  - FALL [None]
  - HAEMATOMA [None]
  - INTERNATIONAL NORMALISED RATIO INCREASED [None]
  - URINARY TRACT INFECTION [None]
